FAERS Safety Report 4335130-6 (Version None)
Quarter: 2004Q1

REPORT INFORMATION
  Report Type: 
  Country: None (occurrence: None)
  Receive Date: 20040329
  Receipt Date: 20040126
  Transmission Date: 20041129
  Serious: No
  Sender: FDA-Public Use
  Company Number: 04P-163-0248352-00

PATIENT
  Age: 80 Year
  Sex: Female

DRUGS (8)
  1. HUMIRA [Suspect]
     Indication: RHEUMATOID ARTHRITIS
     Dosage: 40 MG, 1 IN 2 WK, INJECTION
     Dates: start: 20030101
  2. LEVOTHYROXINE SODIUM [Concomitant]
  3. RISEDRONATE SODIUM [Concomitant]
  4. LEXAPRO [Concomitant]
  5. DARVOCET [Concomitant]
  6. FLUTICASONE PROPIONATE [Concomitant]
  7. BUCINDOLOL HYDROCHLORIDE [Concomitant]
  8. KARVEA HCT [Concomitant]

REACTIONS (2)
  - EYE DISCHARGE [None]
  - EYE INFLAMMATION [None]
